FAERS Safety Report 6551606-5 (Version None)
Quarter: 2010Q1

REPORT INFORMATION
  Report Type: 
  Country: None (occurrence: None)
  Receive Date: 20100120
  Receipt Date: 20100105
  Transmission Date: 20100710
  Serious: Yes (Other)
  Sender: FDA-Public Use
  Company Number: 2009BM000156

PATIENT
  Age: 16 Year
  Sex: Male
  Weight: 26 kg

DRUGS (6)
  1. NAGLAZYME [Suspect]
     Indication: MUCOPOLYSACCHARIDOSIS VI
     Dosage: 25 MG;QW;IVDRP
     Route: 041
     Dates: start: 20080901, end: 20090708
  2. NAGLAZYME [Suspect]
     Indication: MUCOPOLYSACCHARIDOSIS VI
     Dosage: 25 MG;QW;IVDRP
     Route: 041
     Dates: start: 20090722
  3. PHENOBARBITAL TAB [Concomitant]
  4. PHENYTOIN [Concomitant]
  5. PROMETHAZINE [Concomitant]
  6. DIPYRONE [Concomitant]

REACTIONS (7)
  - CONVULSION [None]
  - GRAND MAL CONVULSION [None]
  - HEART RATE INCREASED [None]
  - INCREASED BRONCHIAL SECRETION [None]
  - INFUSION RELATED REACTION [None]
  - RESPIRATORY RATE INCREASED [None]
  - TRACHEAL STENOSIS [None]
